FAERS Safety Report 18683553 (Version 2)
Quarter: 2021Q1

REPORT INFORMATION
  Report Type: Spontaneous
  Country: IN (occurrence: IN)
  Receive Date: 20201230
  Receipt Date: 20210107
  Transmission Date: 20210419
  Serious: No
  Sender: FDA-Public Use
  Company Number: IN-PFIZER INC-2020241792

PATIENT
  Age: 48 Year
  Sex: Female

DRUGS (5)
  1. D VIT [Concomitant]
     Dosage: 1 DF, 2X/DAY
  2. PALBACE [Suspect]
     Active Substance: PALBOCICLIB
     Indication: BREAST CANCER METASTATIC
     Dosage: 125 MG, CYCLIC (21 DAYS ON AND ONE WEEK OFF)
     Route: 048
     Dates: start: 20181215
  3. LETROZOLE. [Concomitant]
     Active Substance: LETROZOLE
     Dosage: 2.5 MG, 1X/DAY
  4. ZOLEBENZ [Concomitant]
     Dosage: UNK
  5. CALCION D PLUS [Concomitant]
     Dosage: 60000 IU, MONTHLY

REACTIONS (4)
  - White blood cell disorder [Unknown]
  - Platelet count abnormal [Unknown]
  - Haemoglobin decreased [Unknown]
  - Swelling [Unknown]

NARRATIVE: CASE EVENT DATE: 20200424
